FAERS Safety Report 21940231 (Version 1)
Quarter: 2023Q1

REPORT INFORMATION
  Report Type: Report from Study
  Country: US (occurrence: US)
  Receive Date: 20230201
  Receipt Date: 20230201
  Transmission Date: 20230418
  Serious: No
  Sender: FDA-Public Use
  Company Number: US-EXELIXIS-CABO-22050279

PATIENT
  Age: 84 Year
  Sex: Male
  Weight: 64.853 kg

DRUGS (23)
  1. CABOMETYX [Suspect]
     Active Substance: CABOZANTINIB S-MALATE
     Indication: Metastatic renal cell carcinoma
     Dosage: UNK
     Dates: start: 20211202, end: 20211216
  2. CABOMETYX [Suspect]
     Active Substance: CABOZANTINIB S-MALATE
     Indication: Neoplasm malignant
     Dosage: UNK
  3. CABOMETYX [Suspect]
     Active Substance: CABOZANTINIB S-MALATE
     Indication: Metastases to lung
     Dosage: 40 MG, QD
     Dates: start: 20220302, end: 20220331
  4. CABOMETYX [Suspect]
     Active Substance: CABOZANTINIB S-MALATE
     Indication: Metastases to lymph nodes
     Dosage: 40 MG (ONE DAY ON AND 2 DAYS OFF)
     Dates: start: 20220407
  5. CABOMETYX [Suspect]
     Active Substance: CABOZANTINIB S-MALATE
     Dosage: 20 MG, QD
     Dates: start: 20220421, end: 20220425
  6. CABOMETYX [Suspect]
     Active Substance: CABOZANTINIB S-MALATE
     Dosage: 20 MG
     Dates: end: 20220726
  7. OPDIVO [Suspect]
     Active Substance: NIVOLUMAB
     Indication: Metastatic renal cell carcinoma
     Dosage: UNK, Q2WEEKS
  8. OPDIVO [Suspect]
     Active Substance: NIVOLUMAB
     Indication: Neoplasm malignant
  9. OPDIVO [Suspect]
     Active Substance: NIVOLUMAB
     Indication: Metastases to lung
  10. OPDIVO [Suspect]
     Active Substance: NIVOLUMAB
     Indication: Metastases to lymph nodes
  11. DOCUSATE SODIUM [Concomitant]
     Active Substance: DOCUSATE SODIUM
     Dosage: UNK
  12. IRON [Concomitant]
     Active Substance: IRON
     Dosage: UNK
  13. RAMIPRIL [Concomitant]
     Active Substance: RAMIPRIL
     Dosage: UNK
  14. VITAMIN B12 [Concomitant]
     Active Substance: CYANOCOBALAMIN
     Dosage: UNK
  15. VITAMIN C [Concomitant]
     Active Substance: ASCORBIC ACID
     Dosage: UNK
  16. VITAMIN D3 [Concomitant]
     Active Substance: CHOLECALCIFEROL
     Dosage: UNK
  17. FERROUS SULFATE [Concomitant]
     Active Substance: FERROUS SULFATE
  18. MEDROL [Concomitant]
     Active Substance: METHYLPREDNISOLONE
  19. METAMUCIL [Concomitant]
     Active Substance: PLANTAGO SEED
  20. SYSTANE (HYPROMELLOSE 2910 (4000 MPA.S)) [Concomitant]
     Active Substance: HYPROMELLOSE 2910 (4000 MPA.S)
  21. TYLENOL [Concomitant]
     Active Substance: ACETAMINOPHEN
  22. ZINC [Concomitant]
     Active Substance: ZINC
     Dosage: UNK
  23. ZINC [Concomitant]
     Active Substance: ZINC
     Dosage: UNK

REACTIONS (31)
  - Abdominal discomfort [Recovering/Resolving]
  - Erythema [Unknown]
  - Nervousness [Unknown]
  - Dry eye [Not Recovered/Not Resolved]
  - Dry throat [Not Recovered/Not Resolved]
  - Speech disorder [Recovered/Resolved]
  - Rhinorrhoea [Not Recovered/Not Resolved]
  - Malaise [Unknown]
  - Chest pain [Recovered/Resolved]
  - Drug intolerance [Unknown]
  - Pain [Unknown]
  - Tinnitus [Unknown]
  - Asthenia [Recovering/Resolving]
  - Dizziness [Recovering/Resolving]
  - Headache [Recovered/Resolved]
  - Dyspnoea [Recovered/Resolved]
  - Fatigue [Unknown]
  - Arthralgia [Recovered/Resolved]
  - Diarrhoea [Recovered/Resolved]
  - Decreased appetite [Unknown]
  - Nausea [Recovered/Resolved]
  - Dry mouth [Not Recovered/Not Resolved]
  - Constipation [Recovered/Resolved]
  - Blood pressure increased [Recovered/Resolved]
  - Pain in extremity [Recovered/Resolved]
  - Thrombocytopenia [Unknown]
  - Anaemia [Unknown]
  - Dysphonia [Unknown]
  - Taste disorder [Unknown]
  - Inappropriate schedule of product administration [Unknown]
  - Product dose omission issue [Unknown]

NARRATIVE: CASE EVENT DATE: 20220210
